FAERS Safety Report 15251200 (Version 2)
Quarter: 2018Q3

REPORT INFORMATION
  Report Type: Report from Study
  Country: KR (occurrence: KR)
  Receive Date: 20180807
  Receipt Date: 20180809
  Transmission Date: 20181010
  Serious: Yes (Hospitalization)
  Sender: FDA-Public Use
  Company Number: KR-SA-2018SA204973

PATIENT
  Age: 82 Year
  Sex: Male

DRUGS (18)
  1. NICORAN [Concomitant]
     Dosage: UNK
     Dates: start: 20180129
  2. DRONEDARONE [Suspect]
     Active Substance: DRONEDARONE
     Dosage: UNK
     Dates: start: 20180129
  3. BEECOM [Concomitant]
     Dosage: UNK
     Dates: start: 20180129
  4. POSOD [Concomitant]
     Dosage: UNK
     Dates: start: 20180129
  5. SUVAST [Concomitant]
     Dosage: UNK MG
     Dates: start: 20180129
  6. HANMI UREA [Concomitant]
     Dosage: UNK
     Dates: start: 20180129
  7. HYABAK [Concomitant]
     Active Substance: HYALURONATE SODIUM
     Dosage: UNK
     Dates: start: 20180209
  8. NITROGLYCERIN. [Concomitant]
     Active Substance: NITROGLYCERIN
     Dosage: UNK MG
     Dates: start: 20180129
  9. ASPIRIN. [Concomitant]
     Active Substance: ASPIRIN
     Dosage: UNK
     Dates: start: 20180129
  10. ANTIBIO [Concomitant]
     Dosage: UNK
     Dates: start: 20180129
  11. ARCOXIA [Concomitant]
     Active Substance: ETORICOXIB
     Dosage: UNK
     Dates: start: 20180410
  12. VASTINAN MR [Concomitant]
     Dosage: UNK MG
     Dates: start: 20180129
  13. CONBLOC [Concomitant]
     Dosage: UNK MG
     Dates: start: 20180129
  14. ISOTRIL [Concomitant]
     Dosage: UNK
     Dates: start: 20180129
  15. LIXIANA [Concomitant]
     Active Substance: EDOXABAN TOSYLATE
     Dosage: UNK
     Dates: start: 20180129
  16. RANIBIG [Concomitant]
     Dosage: UNK
     Dates: start: 20180129
  17. ACERTIL [PERINDOPRIL ARGININE] [Concomitant]
     Dosage: UNK MG
     Dates: start: 20180129
  18. GLIMEL [GLIBENCLAMIDE] [Concomitant]
     Dosage: UNK
     Dates: start: 20180129

REACTIONS (1)
  - Appendicitis [Recovered/Resolved]

NARRATIVE: CASE EVENT DATE: 20180704
